FAERS Safety Report 5211774-4 (Version None)
Quarter: 2007Q1

REPORT INFORMATION
  Report Type: 
  Country: None (occurrence: None)
  Receive Date: 20070117
  Receipt Date: 20070117
  Transmission Date: 20070707
  Serious: Yes (Other)
  Sender: FDA-Public Use
  Company Number: None

PATIENT
  Sex: Female
  Weight: 63.5036 kg

DRUGS (2)
  1. PROMETHAZINE [Suspect]
     Indication: NAUSEA
     Dosage: 1 TABLET   EVERY 6 HOURS
     Dates: start: 20061216, end: 20061231
  2. PROMETHAZINE [Suspect]
     Indication: PREGNANCY
     Dosage: 1 TABLET   EVERY 6 HOURS
     Dates: start: 20061216, end: 20061231

REACTIONS (5)
  - DRUG EXPOSURE DURING PREGNANCY [None]
  - DRUG PRESCRIBING ERROR [None]
  - HAEMORRHAGE [None]
  - INTRA-UTERINE DEATH [None]
  - MEDICATION ERROR [None]
